FAERS Safety Report 16794324 (Version 2)
Quarter: 2019Q4

REPORT INFORMATION
  Report Type: Report from Study
  Country: None (occurrence: US)
  Receive Date: 20190911
  Receipt Date: 20191003
  Transmission Date: 20200122
  Serious: Yes (Death)
  Sender: FDA-Public Use
  Company Number: US-ABBVIE-19K-163-2919726-00

PATIENT
  Age: 76 Year
  Sex: Male
  Weight: 71.73 kg

DRUGS (1)
  1. VENCLEXTA [Suspect]
     Active Substance: VENETOCLAX
     Indication: ACUTE MYELOID LEUKAEMIA
     Route: 048

REACTIONS (11)
  - Blast cell count increased [Fatal]
  - Platelet count decreased [Fatal]
  - Acute myeloid leukaemia [Fatal]
  - Neutrophil count decreased [Fatal]
  - Red blood cell count decreased [Fatal]
  - Red cell distribution width increased [Fatal]
  - Haematocrit decreased [Fatal]
  - White blood cell count decreased [Fatal]
  - White blood cell count increased [Fatal]
  - Haemoglobin decreased [Fatal]
  - Blood glucose increased [Fatal]

NARRATIVE: CASE EVENT DATE: 20190721
